FAERS Safety Report 5219376-0 (Version None)
Quarter: 2007Q1

REPORT INFORMATION
  Report Type: 
  Country: None (occurrence: None)
  Receive Date: 20070125
  Receipt Date: 20070115
  Transmission Date: 20070707
  Serious: Yes (Hospitalization)
  Sender: FDA-Public Use
  Company Number: JP-SANOFI-SYNTHELABO-A01200610438

PATIENT
  Sex: Male
  Weight: 55 kg

DRUGS (7)
  1. ASPIRIN [Concomitant]
     Indication: CEREBRAL INFARCTION
     Route: 048
     Dates: start: 20050717, end: 20060622
  2. PLETAL [Concomitant]
     Indication: CEREBRAL INFARCTION
     Route: 048
     Dates: start: 20060623, end: 20060808
  3. ALLOPURINOL [Concomitant]
     Indication: HYPERURICAEMIA
     Route: 048
     Dates: start: 20050906, end: 20060905
  4. AM [Concomitant]
     Route: 048
     Dates: start: 20060809
  5. GASTER D [Concomitant]
     Indication: GASTRITIS
     Route: 048
     Dates: start: 20060327
  6. PLAVIX [Suspect]
     Indication: CEREBRAL INFARCTION
     Route: 048
     Dates: start: 20060809, end: 20061025
  7. DIOVAN [Concomitant]
     Indication: HYPERTENSION
     Route: 048
     Dates: start: 20050717

REACTIONS (4)
  - ANOREXIA [None]
  - BILE DUCT CANCER [None]
  - JAUNDICE [None]
  - TRANSAMINASES INCREASED [None]
